FAERS Safety Report 21301837 (Version 1)
Quarter: 2022Q3

REPORT INFORMATION
  Report Type: Spontaneous
  Country: US (occurrence: None)
  Receive Date: 20220906
  Receipt Date: 20220906
  Transmission Date: 20221027
  Serious: No
  Sender: FDA-Public Use
  Company Number: None

PATIENT
  Age: 75 Year
  Sex: Female

DRUGS (1)
  1. GLATIRAMER ACETATE [Suspect]
     Active Substance: GLATIRAMER ACETATE
     Route: 058
     Dates: start: 20220903

REACTIONS (7)
  - Lip swelling [None]
  - Eye swelling [None]
  - Tremor [None]
  - Chills [None]
  - Injection site induration [None]
  - Oral herpes [None]
  - Feeling abnormal [None]

NARRATIVE: CASE EVENT DATE: 20220903
